FAERS Safety Report 11338764 (Version 1)
Quarter: 2015Q3

REPORT INFORMATION
  Report Type: Spontaneous
  Country: US (occurrence: US)
  Receive Date: 20150803
  Receipt Date: 20150803
  Transmission Date: 20151125
  Serious: No
  Sender: FDA-Public Use
  Company Number: US-ELI_LILLY_AND_COMPANY-US200807002889

PATIENT
  Age: 17 Year
  Sex: Male

DRUGS (3)
  1. LITHIUM. [Concomitant]
     Active Substance: LITHIUM
  2. ABILIFY [Concomitant]
     Active Substance: ARIPIPRAZOLE
  3. STRATTERA [Suspect]
     Active Substance: ATOMOXETINE HYDROCHLORIDE
     Dosage: 100 MG, UNK
     Dates: start: 200701, end: 200801

REACTIONS (2)
  - Blood pressure increased [Unknown]
  - Blood creatinine increased [Unknown]
